FAERS Safety Report 9878178 (Version 1)
Quarter: 2014Q1

REPORT INFORMATION
  Report Type: Spontaneous
  Country: US (occurrence: US)
  Receive Date: 20140206
  Receipt Date: 20140206
  Transmission Date: 20141002
  Serious: No
  Sender: FDA-Public Use
  Company Number: US-BAXTER-2014BAX005312

PATIENT
  Age: 75 Year
  Sex: Female
  Weight: 81.64 kg

DRUGS (3)
  1. GAMMAGARD LIQUID [Suspect]
     Indication: BRONCHIECTASIS
     Route: 042
     Dates: end: 20131217
  2. GAMMAGARD LIQUID [Suspect]
     Indication: OFF LABEL USE
  3. INTRAVENOUS IMMUNOGLOBULIN [Concomitant]
     Indication: BRONCHIECTASIS
     Route: 042
     Dates: start: 2008

REACTIONS (2)
  - Haemoptysis [Not Recovered/Not Resolved]
  - Drug dose omission [Recovered/Resolved]
